FAERS Safety Report 7313062-9 (Version None)
Quarter: 2011Q1

REPORT INFORMATION
  Report Type: 
  Country: None (occurrence: None)
  Receive Date: 20110225
  Receipt Date: 20110211
  Transmission Date: 20110831
  Serious: No
  Sender: FDA-Public Use
  Company Number: US-BIOGENIDEC-2010BI035978

PATIENT
  Sex: Female

DRUGS (1)
  1. TYSABRI [Suspect]
     Indication: MULTIPLE SCLEROSIS
     Route: 042
     Dates: start: 20100810

REACTIONS (7)
  - DIZZINESS [None]
  - HAEMOGLOBIN DECREASED [None]
  - MEAN CELL VOLUME DECREASED [None]
  - RED CELL DISTRIBUTION WIDTH INCREASED [None]
  - FATIGUE [None]
  - MEAN CELL HAEMOGLOBIN DECREASED [None]
  - HAEMATOCRIT DECREASED [None]
